FAERS Safety Report 9176713 (Version 1)
Quarter: 2013Q1

REPORT INFORMATION
  Report Type: Spontaneous
  Country: US (occurrence: US)
  Receive Date: 20130321
  Receipt Date: 20130321
  Transmission Date: 20140127
  Serious: No
  Sender: FDA-Public Use
  Company Number: US-MYLANLABS-2012S1002549

PATIENT
  Age: 58 Year
  Sex: Female

DRUGS (4)
  1. AMLODIPINE BESYLATE TABLETS [Suspect]
     Indication: BLOOD PRESSURE
     Route: 048
  2. LOSARTAN [Suspect]
     Indication: BLOOD PRESSURE
     Route: 048
  3. ATENOLOL [Suspect]
     Indication: BLOOD PRESSURE
     Route: 048
  4. HYDROCHLOROTHIAZIDE TABLETS, USP [Suspect]
     Indication: BLOOD PRESSURE
     Route: 048

REACTIONS (2)
  - Drug ineffective [Unknown]
  - Blood pressure increased [Unknown]
